FAERS Safety Report 13832592 (Version 3)
Quarter: 2021Q3

REPORT INFORMATION
  Report Type: Spontaneous
  Country: IT (occurrence: IT)
  Receive Date: 20170804
  Receipt Date: 20210915
  Transmission Date: 20211014
  Serious: Yes (Life-Threatening, Hospitalization, Other)
  Sender: FDA-Public Use
  Company Number: IT-ELI_LILLY_AND_COMPANY-IT201708000087

PATIENT
  Age: 78 Year
  Sex: Male

DRUGS (12)
  1. LYRICA [Concomitant]
     Active Substance: PREGABALIN
     Dosage: 150 MG, DAILY
     Route: 065
  2. LUMIGAN [Concomitant]
     Active Substance: BIMATOPROST
     Dosage: 1 DROP PER EYE
     Route: 065
  3. NITROGLYCERIN. [Concomitant]
     Active Substance: NITROGLYCERIN
     Dosage: 5 MG, DAILY
     Route: 065
  4. CARDIOASPIRIN [Concomitant]
     Active Substance: ASPIRIN
     Dosage: 100 MG, DAILY
     Route: 065
  5. NORVASC [Concomitant]
     Active Substance: AMLODIPINE BESYLATE
     Dosage: 5 MG, DAILY
     Route: 065
  6. HUMALOG [Suspect]
     Active Substance: INSULIN LISPRO
     Indication: TYPE 2 DIABETES MELLITUS
     Dosage: UNK, UNKNOWN
     Route: 058
  7. CYMBALTA [Concomitant]
     Active Substance: DULOXETINE HYDROCHLORIDE
     Dosage: 60 MG, DAILY
     Route: 065
  8. INSULIN GLARGINE [Suspect]
     Active Substance: INSULIN GLARGINE
     Indication: TYPE 2 DIABETES MELLITUS
     Dosage: 18 IU, DAILY
     Route: 058
  9. SIMVASTATIN. [Concomitant]
     Active Substance: SIMVASTATIN
     Dosage: 20 MG, DAILY
     Route: 065
  10. COMBIGAN [Concomitant]
     Active Substance: BRIMONIDINE TARTRATE\TIMOLOL MALEATE
     Dosage: 1 DROP PER EYE
     Route: 065
  11. BISOPROLOL [Concomitant]
     Active Substance: BISOPROLOL
     Indication: SUPRAVENTRICULAR EXTRASYSTOLES
  12. OMEPRAZOLE. [Concomitant]
     Active Substance: OMEPRAZOLE
     Dosage: 20 MG, DAILY
     Route: 065

REACTIONS (7)
  - Craniocerebral injury [Unknown]
  - Polyneuropathy [Unknown]
  - Carotid arteriosclerosis [Unknown]
  - Hypoglycaemic coma [Unknown]
  - Chronic lymphocytic leukaemia [Unknown]
  - Inguinal hernia [Unknown]
  - Fall [Unknown]

NARRATIVE: CASE EVENT DATE: 20170709
